FAERS Safety Report 10028224 (Version 3)
Quarter: 2014Q4

REPORT INFORMATION
  Report Type: Spontaneous
  Country: US (occurrence: US)
  Receive Date: 20140321
  Receipt Date: 20141111
  Transmission Date: 20150528
  Serious: Yes (Hospitalization, Other)
  Sender: FDA-Public Use
  Company Number: US-SANOFI-AVENTIS-2012SA028330

PATIENT
  Age: 51 Year
  Sex: Female

DRUGS (1)
  1. PLAVIX [Suspect]
     Active Substance: CLOPIDOGREL BISULFATE
     Indication: PRODUCT USED FOR UNKNOWN INDICATION
     Route: 048
     Dates: start: 20080801, end: 20090925

REACTIONS (3)
  - Multiple injuries [Unknown]
  - Gastrointestinal haemorrhage [Unknown]
  - Ulcer [Unknown]

NARRATIVE: CASE EVENT DATE: 200909
